FAERS Safety Report 6878095-5 (Version None)
Quarter: 2010Q2

REPORT INFORMATION
  Report Type: 
  Country: None (occurrence: None)
  Receive Date: 20100616
  Receipt Date: 20100302
  Transmission Date: 20101027
  Serious: No
  Sender: FDA-Public Use
  Company Number: DSA_42717_2010

PATIENT
  Sex: Female

DRUGS (2)
  1. XENAZINE [Suspect]
     Indication: MEIGE'S SYNDROME
     Dosage: (12.5 MG QD ORAL), (25 MG QD ORAL)
     Route: 048
     Dates: start: 20100209, end: 20100215
  2. XENAZINE [Suspect]
     Indication: MEIGE'S SYNDROME
     Dosage: (12.5 MG QD ORAL), (25 MG QD ORAL)
     Route: 048
     Dates: start: 20100216

REACTIONS (4)
  - ARTHRALGIA [None]
  - MOOD SWINGS [None]
  - NEGATIVE THOUGHTS [None]
  - RHEUMATOID ARTHRITIS [None]
